FAERS Safety Report 7769867-3 (Version None)
Quarter: 2011Q3

REPORT INFORMATION
  Report Type: 
  Country: None (occurrence: None)
  Receive Date: 20110922
  Receipt Date: 20110523
  Transmission Date: 20111222
  Serious: Yes (Other)
  Sender: FDA-Public Use
  Company Number: US-ASTRAZENECA-2011SE25889

PATIENT
  Age: 11080 Day
  Sex: Female

DRUGS (4)
  1. SEROQUEL XR [Suspect]
     Indication: BIPOLAR DISORDER
     Route: 048
     Dates: start: 20070301
  2. VICODIN [Concomitant]
     Indication: HYPOTENSION
     Dosage: PRN
     Route: 048
     Dates: start: 20090101
  3. ADDERALL 5 [Concomitant]
     Indication: ATTENTION DEFICIT/HYPERACTIVITY DISORDER
     Route: 048
     Dates: start: 20101013
  4. XANAX [Concomitant]
     Dosage: PRN

REACTIONS (4)
  - DYSTONIA [None]
  - DYSKINESIA [None]
  - DYSARTHRIA [None]
  - AKATHISIA [None]
